FAERS Safety Report 8207392-6 (Version None)
Quarter: 2012Q1

REPORT INFORMATION
  Report Type: 
  Country: None (occurrence: None)
  Receive Date: 20120314
  Receipt Date: 20120306
  Transmission Date: 20120608
  Serious: No
  Sender: FDA-Public Use
  Company Number: US-BAYER-201021556NA

PATIENT
  Age: 32 Year
  Sex: Female
  Weight: 104 kg

DRUGS (2)
  1. MIRENA [Suspect]
     Indication: CONTRACEPTION
     Dosage: 20 MCG/24HR, CONT
     Route: 015
     Dates: start: 20090309, end: 20100324
  2. ALBUTEROL [Concomitant]
     Dosage: UNK UNK, PRN

REACTIONS (1)
  - PREGNANCY WITH CONTRACEPTIVE DEVICE [None]
